FAERS Safety Report 9688873 (Version 1)
Quarter: 2013Q4

REPORT INFORMATION
  Report Type: Spontaneous
  Country: US (occurrence: None)
  Receive Date: 20131113
  Receipt Date: 20131113
  Transmission Date: 20140711
  Serious: Yes (Other)
  Sender: FDA-Public Use
  Company Number: IPC201311-000446

PATIENT
  Age: 61 Year
  Sex: Female
  Weight: 86.17 kg

DRUGS (11)
  1. HYDROCHLOROTHIAZIDE [Suspect]
     Indication: BLOOD PRESSURE
     Route: 048
     Dates: start: 2003
  2. ATENOLOL [Suspect]
     Indication: BLOOD PRESSURE
  3. NEXIUM [Suspect]
     Indication: GASTROOESOPHAGEAL REFLUX DISEASE
     Dates: start: 2003, end: 201309
  4. SYNTHROID(LEVOTHYROXINE SODIUM) (LEVOTHYROXINE SODIUM) [Concomitant]
     Dates: start: 2008
  5. IBUPROFEN (IBUPROFEN) (IBUPROFEN) [Concomitant]
  6. ALPRAZOLAM (ALPRAZOLAM) (ALPRAZOLAM) [Concomitant]
  7. MAGNESIUM (MAGNESIUM) (MAGNESIUM) [Concomitant]
  8. CALCIUM (CALCIUM) (CALCIUM) [Concomitant]
  9. ERGOCALCIFEROL (VITAMIN D) (VITAMIN D) [Concomitant]
  10. VENLAFAXINE(VENLAFAXINE) (VENLAFAXINE) [Concomitant]
  11. PANTOPRAZOLE (PANTOPRAZOLE) (PANTOPRAZOLE) [Suspect]

REACTIONS (16)
  - Meniscus injury [None]
  - Gastric disorder [None]
  - Gastrooesophageal reflux disease [None]
  - Pain [None]
  - Disease recurrence [None]
  - Fall [None]
  - Osteoarthritis [None]
  - Disease progression [None]
  - Head injury [None]
  - Carpal tunnel syndrome [None]
  - Therapy cessation [None]
  - Sleep disorder due to general medical condition, insomnia type [None]
  - Weight increased [None]
  - Abdominal pain upper [None]
  - Depression [None]
  - Drug ineffective [None]
